FAERS Safety Report 9177308 (Version 1)
Quarter: 2013Q1

REPORT INFORMATION
  Report Type: Spontaneous
  Country: US (occurrence: None)
  Receive Date: 20130320
  Receipt Date: 20130320
  Transmission Date: 20140127
  Serious: Yes (Life-Threatening, Hospitalization)
  Sender: FDA-Public Use
  Company Number: None

PATIENT
  Age: 34 Year
  Sex: Female
  Weight: 115.5 kg

DRUGS (1)
  1. ACETAMINOPHEN\HYDROCODONE [Suspect]
     Indication: PAIN
     Dates: start: 20130125, end: 20130204

REACTIONS (9)
  - Urticaria [None]
  - Rash [None]
  - Oedema [None]
  - Pruritus [None]
  - Local swelling [None]
  - Swelling face [None]
  - Nausea [None]
  - Chills [None]
  - Pharyngeal oedema [None]
